FAERS Safety Report 16676791 (Version 1)
Quarter: 2019Q3

REPORT INFORMATION
  Report Type: Spontaneous
  Country: US (occurrence: US)
  Receive Date: 20190807
  Receipt Date: 20190807
  Transmission Date: 20191004
  Serious: Yes (Other)
  Sender: FDA-Public Use
  Company Number: US-LUPIN PHARMACEUTICALS INC.-2019-04875

PATIENT
  Age: 63 Year
  Sex: Female

DRUGS (1)
  1. CEFUROXIME. [Suspect]
     Active Substance: CEFUROXIME
     Indication: ANTIBIOTIC PROPHYLAXIS
     Dosage: 1 MG/0.1 ML WAS INJECTED INTO THE ANTERIOR CHAMBER

REACTIONS (2)
  - Serous retinal detachment [Recovered/Resolved]
  - Macular oedema [Recovered/Resolved]
